FAERS Safety Report 7759223-6 (Version None)
Quarter: 2011Q3

REPORT INFORMATION
  Report Type: 
  Country: None (occurrence: None)
  Receive Date: 20110825
  Receipt Date: 20110525
  Transmission Date: 20111222
  Serious: No
  Sender: FDA-Public Use
  Company Number: 326200

PATIENT
  Age: 67 Year
  Sex: Female

DRUGS (1)
  1. VICTOZA [Suspect]
     Indication: TYPE 2 DIABETES MELLITUS
     Dosage: 1.2 MG, QD, SUBCUTANEOUS,  0.6 MG, QD, SUBCUTANEOUS
     Route: 058

REACTIONS (5)
  - DECREASED APPETITE [None]
  - BLOOD GLUCOSE INCREASED [None]
  - WEIGHT DECREASED [None]
  - NAUSEA [None]
  - DRUG DOSE OMISSION [None]
